FAERS Safety Report 7076957-X (Version None)
Quarter: 2010Q4

REPORT INFORMATION
  Report Type: 
  Country: None (occurrence: None)
  Receive Date: 20101101
  Receipt Date: 20101027
  Transmission Date: 20110411
  Serious: Yes (Hospitalization)
  Sender: FDA-Public Use
  Company Number: IT-TEVA-223694ISR

PATIENT
  Sex: Female

DRUGS (4)
  1. ETOPOSIDE [Suspect]
     Indication: ACUTE MONOCYTIC LEUKAEMIA
     Route: 042
     Dates: start: 20090712, end: 20090716
  2. CYTARABINE [Suspect]
     Indication: ACUTE MONOCYTIC LEUKAEMIA
     Route: 042
     Dates: start: 20090709, end: 20090712
  3. CYTARABINE [Suspect]
     Route: 042
     Dates: start: 20090712, end: 20090715
  4. IDARUBICIN HYDROCHLORIDE [Suspect]
     Indication: ACUTE MONOCYTIC LEUKAEMIA
     Route: 042
     Dates: start: 20090712, end: 20090714

REACTIONS (4)
  - OEDEMA [None]
  - STOMATITIS [None]
  - STOMATITIS NECROTISING [None]
  - VOMITING [None]
